FAERS Safety Report 9159426 (Version 1)
Quarter: 2013Q1

REPORT INFORMATION
  Report Type: Spontaneous
  Country: CL (occurrence: CL)
  Receive Date: 20130313
  Receipt Date: 20130313
  Transmission Date: 20140127
  Serious: Yes (Life-Threatening, Hospitalization)
  Sender: FDA-Public Use
  Company Number: PHHY2013CL023106

PATIENT
  Sex: Male

DRUGS (2)
  1. GLIVEC [Suspect]
     Indication: ACUTE LYMPHOCYTIC LEUKAEMIA
     Dosage: 600 MG, UNK
     Route: 048
     Dates: start: 20121113
  2. CYTARABINE [Concomitant]
     Dosage: UNK UKN, UNK

REACTIONS (7)
  - Nervous system disorder [Unknown]
  - Renal disorder [Unknown]
  - Blindness [Unknown]
  - Mucosal inflammation [Unknown]
  - Aphasia [Unknown]
  - Tachycardia [Unknown]
  - Hypophagia [Unknown]
